FAERS Safety Report 12802149 (Version 1)
Quarter: 2016Q3

REPORT INFORMATION
  Report Type: Spontaneous
  Country: US (occurrence: US)
  Receive Date: 20160930
  Receipt Date: 20160930
  Transmission Date: 20161109
  Serious: Yes (Life-Threatening, Other)
  Sender: FDA-Public Use
  Company Number: None

PATIENT
  Age: 15 Year
  Sex: Male
  Weight: 49.4 kg

DRUGS (1)
  1. ERWINIA SPARAGINASE [Suspect]
     Active Substance: ASPARAGINASE ERWINIA CHRYSANTHEMI

REACTIONS (3)
  - Aphasia [None]
  - Hemiplegia [None]
  - Facial paralysis [None]

NARRATIVE: CASE EVENT DATE: 20160929
